FAERS Safety Report 19168639 (Version 1)
Quarter: 2021Q2

REPORT INFORMATION
  Report Type: Spontaneous
  Country: US (occurrence: US)
  Receive Date: 20210422
  Receipt Date: 20210422
  Transmission Date: 20210717
  Serious: Yes (Other)
  Sender: FDA-Public Use
  Company Number: US-MYLANLABS-2021M1023774

PATIENT
  Age: 78 Year
  Sex: Female

DRUGS (4)
  1. ISOSORBIDE MONONITRATE. [Concomitant]
     Active Substance: ISOSORBIDE MONONITRATE
     Indication: ANGINA PECTORIS
     Dosage: 30 MILLIGRAM, BID
     Route: 065
  2. ASPIRIN                            /00002701/ [Concomitant]
     Active Substance: ASPIRIN
     Indication: THROMBOSIS PROPHYLAXIS
     Dosage: 81 MILLIGRAM, QD RECEIVED 324 MG OF ASPIRIN...
     Route: 065
  3. METOPROLOL TARTRATE. [Concomitant]
     Active Substance: METOPROLOL TARTRATE
     Indication: ANGINA PECTORIS
     Dosage: 50 MILLIGRAM, BID
     Route: 065
  4. CLOPIDOGREL [Suspect]
     Active Substance: CLOPIDOGREL BISULFATE
     Indication: THROMBOSIS PROPHYLAXIS
     Dosage: 75 MILLIGRAM SIX TABLETS WERE ADMINISTERED...
     Route: 048

REACTIONS (2)
  - Oesophageal ulcer [Recovering/Resolving]
  - Oesophagitis [Recovering/Resolving]
